FAERS Safety Report 25711835 (Version 2)
Quarter: 2025Q3

REPORT INFORMATION
  Report Type: Spontaneous
  Country: US (occurrence: US)
  Receive Date: 20250821
  Receipt Date: 20250930
  Transmission Date: 20251020
  Serious: No
  Sender: SANOFI AVENTIS
  Company Number: US-SA-2025SA247078

PATIENT
  Age: 25 Year
  Sex: Female
  Weight: 95.7 kg

DRUGS (16)
  1. DUPIXENT [Suspect]
     Active Substance: DUPILUMAB
     Indication: Asthma
     Dosage: 300 MG, QOW
     Route: 058
  2. DUPIXENT [Suspect]
     Active Substance: DUPILUMAB
     Indication: Dermatitis atopic
  3. SINGULAIR [Concomitant]
     Active Substance: MONTELUKAST SODIUM
  4. OMEPRAZOLE [Concomitant]
     Active Substance: OMEPRAZOLE
  5. SYMBICORT [Concomitant]
     Active Substance: BUDESONIDE\FORMOTEROL FUMARATE DIHYDRATE
  6. NASACORT [Concomitant]
     Active Substance: TRIAMCINOLONE ACETONIDE
  7. LEXAPRO [Concomitant]
     Active Substance: ESCITALOPRAM OXALATE
  8. REXULTI [Concomitant]
     Active Substance: BREXPIPRAZOLE
  9. FASENRA [Concomitant]
     Active Substance: BENRALIZUMAB
  10. LORATADINE [Concomitant]
     Active Substance: LORATADINE
  11. ZOLMITRIPTAN [Concomitant]
     Active Substance: ZOLMITRIPTAN
  12. RIZATRIPTAN [Concomitant]
     Active Substance: RIZATRIPTAN
  13. PEPCID [Concomitant]
     Active Substance: FAMOTIDINE
  14. NAPROXEN [Concomitant]
     Active Substance: NAPROXEN
  15. PROMETHAZINE HYDROCHLORIDE [Concomitant]
     Active Substance: PROMETHAZINE HYDROCHLORIDE
  16. QULIPTA [Concomitant]
     Active Substance: ATOGEPANT

REACTIONS (2)
  - Migraine [Unknown]
  - Affective disorder [Unknown]
